FAERS Safety Report 24091224 (Version 1)
Quarter: 2024Q3

REPORT INFORMATION
  Report Type: Spontaneous
  Country: FR (occurrence: FR)
  Receive Date: 20240715
  Receipt Date: 20240715
  Transmission Date: 20241017
  Serious: Yes (Other)
  Sender: PFIZER
  Company Number: None

PATIENT
  Age: 75 Year
  Sex: Female
  Weight: 50 kg

DRUGS (3)
  1. AZITHROMYCIN [Suspect]
     Active Substance: AZITHROMYCIN
     Indication: Lung disorder
     Dosage: 250 MG, 1X/DAY
     Route: 048
     Dates: start: 20231208, end: 20240530
  2. ETHAMBUTOL HYDROCHLORIDE [Suspect]
     Active Substance: ETHAMBUTOL HYDROCHLORIDE
     Indication: Lung disorder
     Dosage: 1 G, 1X/DAY
     Route: 048
     Dates: start: 20231208, end: 20240530
  3. RIFABUTIN [Suspect]
     Active Substance: RIFABUTIN
     Indication: Lung disorder
     Dosage: 150 MG, 1X/DAY
     Route: 048
     Dates: start: 20240115, end: 20240530

REACTIONS (3)
  - Lichen planus [Recovering/Resolving]
  - Off label use [Unknown]
  - Product use issue [Unknown]

NARRATIVE: CASE EVENT DATE: 20231208
